FAERS Safety Report 7220628-3 (Version None)
Quarter: 2011Q1

REPORT INFORMATION
  Report Type: 
  Country: None (occurrence: None)
  Receive Date: 20110111
  Receipt Date: 20110105
  Transmission Date: 20110831
  Serious: Yes (Other)
  Sender: FDA-Public Use
  Company Number: US-PFIZER INC-2011003350

PATIENT
  Sex: Female
  Weight: 58.957 kg

DRUGS (9)
  1. CARBIDOPA [Concomitant]
     Dosage: UNK, 2X/DAY
  2. VITAMIN D [Concomitant]
     Dosage: UNK
  3. LISINOPRIL [Concomitant]
     Dosage: UNK
  4. MELOXICAM [Concomitant]
     Dosage: UNK
  5. CYMBALTA [Concomitant]
     Dosage: UNK
  6. OMEPRAZOLE [Concomitant]
     Dosage: UNK
  7. PRAVASTATIN [Concomitant]
     Dosage: UNK
  8. TOVIAZ [Suspect]
     Indication: HYPERTONIC BLADDER
     Dosage: 8 MG, DAILY
     Route: 048
     Dates: start: 20101101
  9. LEVOTHYROXINE [Concomitant]
     Dosage: UNK

REACTIONS (3)
  - DRY MOUTH [None]
  - DYSPHONIA [None]
  - CONFUSIONAL STATE [None]
